FAERS Safety Report 6715789-6 (Version None)
Quarter: 2010Q2

REPORT INFORMATION
  Report Type: 
  Country: None (occurrence: None)
  Receive Date: 20100507
  Receipt Date: 20100426
  Transmission Date: 20101027
  Serious: Yes (Hospitalization)
  Sender: FDA-Public Use
  Company Number: TR-ELI_LILLY_AND_COMPANY-TR201003000240

PATIENT
  Age: 36 Year
  Sex: Female

DRUGS (5)
  1. HUMULIN R [Suspect]
     Indication: GESTATIONAL DIABETES
     Dosage: 8 IU, EACH MORNING
     Route: 058
     Dates: start: 20091203
  2. HUMULIN N [Suspect]
     Indication: GESTATIONAL DIABETES
     Dosage: 10 IU, EACH EVENING
     Route: 058
     Dates: start: 20091203
  3. ELEVIT [Concomitant]
     Indication: VITAMIN SUPPLEMENTATION
     Dosage: UNK UNK, DAILY (1/D)
     Route: 048
     Dates: start: 20090801
  4. FERRO SANOL /00023514/ [Concomitant]
     Indication: MINERAL SUPPLEMENTATION
     Dosage: UNK UNK, DAILY (1/D)
     Route: 048
     Dates: start: 20090801
  5. LEVOTHYROXINE SODIUM [Concomitant]
     Indication: HYPOTHYROIDISM
     Dosage: 1.5 D/F, 3/D

REACTIONS (2)
  - DRUG EXPOSURE DURING PREGNANCY [None]
  - LABOUR PAIN [None]
